FAERS Safety Report 16186234 (Version 1)
Quarter: 2019Q2

REPORT INFORMATION
  Report Type: Spontaneous
  Country: US (occurrence: US)
  Receive Date: 20190411
  Receipt Date: 20190411
  Transmission Date: 20190711
  Serious: No
  Sender: FDA-Public Use
  Company Number: US-B.I. PHARMACEUTICALS,INC./RIDGEFIELD-2019-BI-016725

PATIENT
  Sex: Female

DRUGS (1)
  1. SPIRIVA [Suspect]
     Active Substance: TIOTROPIUM BROMIDE MONOHYDRATE
     Indication: PRODUCT USED FOR UNKNOWN INDICATION
     Dosage: ONE CAPSULE ONCE A DAY;  FORM STRENGTH: 18 MCG; ACTION(S) TAKEN WITH PRODUCT: NOT REPORTED
     Route: 055
     Dates: start: 201808

REACTIONS (1)
  - Incorrect route of product administration [Unknown]

NARRATIVE: CASE EVENT DATE: 20190410
